FAERS Safety Report 8214580-1 (Version None)
Quarter: 2012Q1

REPORT INFORMATION
  Report Type: 
  Country: None (occurrence: None)
  Receive Date: 20120228
  Receipt Date: 20110221
  Transmission Date: 20120608
  Serious: Yes (Other)
  Sender: FDA-Public Use
  Company Number: RB-16017-2010

PATIENT
  Sex: Male

DRUGS (4)
  1. MULTI-VITAMINS [Concomitant]
  2. VISTARIL [Concomitant]
  3. SUBOXONE [Suspect]
     Indication: DRUG DEPENDENCE
     Dosage: (8 MG QD TRANSPLACENTAL)
     Route: 064
     Dates: start: 20100621, end: 20100902
  4. AMITRIPTYLINE HCL [Concomitant]

REACTIONS (2)
  - FOETAL EXPOSURE DURING PREGNANCY [None]
  - DRUG WITHDRAWAL SYNDROME [None]
